FAERS Safety Report 17272962 (Version 2)
Quarter: 2020Q1

REPORT INFORMATION
  Report Type: Spontaneous
  Country: US (occurrence: US)
  Receive Date: 20200115
  Receipt Date: 20200116
  Transmission Date: 20200409
  Serious: No
  Sender: FDA-Public Use
  Company Number: US-PFIZER INC-2020018709

PATIENT
  Age: 63 Year
  Sex: Female
  Weight: 76.2 kg

DRUGS (3)
  1. PRISTIQ EXTENDED-RELEASE [Suspect]
     Active Substance: DESVENLAFAXINE SUCCINATE
     Indication: FIBROMYALGIA
     Dosage: 100 MG, 1X/DAY (EVERY NIGHT)
     Route: 048
  2. PRISTIQ EXTENDED-RELEASE [Suspect]
     Active Substance: DESVENLAFAXINE SUCCINATE
     Indication: ASTHENIA
  3. PRISTIQ EXTENDED-RELEASE [Suspect]
     Active Substance: DESVENLAFAXINE SUCCINATE
     Indication: DIABETES MELLITUS
     Dosage: 50 MG, UNK

REACTIONS (8)
  - Feeling abnormal [Unknown]
  - Dizziness [Unknown]
  - Off label use [Unknown]
  - Wrong technique in product usage process [Unknown]
  - Product use in unapproved indication [Unknown]
  - Abdominal pain upper [Unknown]
  - Asthenia [Unknown]
  - Impaired work ability [Unknown]

NARRATIVE: CASE EVENT DATE: 2018
